FAERS Safety Report 5565214-6 (Version None)
Quarter: 2007Q4

REPORT INFORMATION
  Report Type: 
  Country: None (occurrence: None)
  Receive Date: 20071218
  Receipt Date: 20071213
  Transmission Date: 20080405
  Serious: Yes (Other)
  Sender: FDA-Public Use
  Company Number: JP-AVENTIS-200713090JP

PATIENT
  Age: 60 Year
  Sex: Male

DRUGS (3)
  1. KETEK [Suspect]
     Indication: PNEUMONIA
     Dosage: DOSE: 2 TABLETS
     Route: 048
     Dates: start: 20071108, end: 20071114
  2. LITHIUM CARBONATE [Concomitant]
     Dosage: DOSE: 3 TABLETS
     Route: 048
     Dates: start: 20020430
  3. LITHIUM CARBONATE [Concomitant]
     Dosage: DOSE: 3 TABLETS
     Route: 048
     Dates: start: 20020430

REACTIONS (5)
  - ANGER [None]
  - HYPERKINESIA [None]
  - INSOMNIA [None]
  - MANIA [None]
  - PSYCHOMOTOR HYPERACTIVITY [None]
